FAERS Safety Report 8067930-3 (Version None)
Quarter: 2012Q1

REPORT INFORMATION
  Report Type: 
  Country: None (occurrence: None)
  Receive Date: 20120124
  Receipt Date: 20110913
  Transmission Date: 20120608
  Serious: No
  Sender: FDA-Public Use
  Company Number: US-AMGEN-USASP2011046965

PATIENT
  Sex: Female

DRUGS (6)
  1. ASPIRIN ANALGESIC [Concomitant]
     Dosage: 1 MG, UNK
  2. CALTRATE                           /00751519/ [Concomitant]
     Dosage: UNK
  3. VITAMIN D [Concomitant]
     Dosage: 1 IU, UNK
  4. PROLIA [Suspect]
     Dosage: 60 MG, Q6MO
  5. PROLIA [Suspect]
     Indication: OSTEOPOROSIS POSTMENOPAUSAL
     Dosage: 60 MG, Q6MO
     Dates: start: 20101001
  6. PROLIA [Suspect]
     Dosage: 60 MG, Q6MO

REACTIONS (3)
  - LOWER LIMB FRACTURE [None]
  - FALL [None]
  - WRIST FRACTURE [None]
